FAERS Safety Report 4864173-9 (Version None)
Quarter: 2005Q4

REPORT INFORMATION
  Report Type: 
  Country: None (occurrence: None)
  Receive Date: 20051222
  Receipt Date: 20050808
  Transmission Date: 20060501
  Serious: Yes (Congenital Anomaly)
  Sender: FDA-Public Use
  Company Number: 200516139US

PATIENT
  Sex: Male

DRUGS (44)
  1. ARAVA [Suspect]
     Indication: RHEUMATOID ARTHRITIS
     Route: 048
     Dates: start: 20040101, end: 20050505
  2. PRENATAL VITAMINS [Concomitant]
     Dosage: DOSE: UNKNOWN
     Route: 064
     Dates: start: 20050505
  3. CALCIUM GLUCONATE [Concomitant]
     Dosage: DOSE: UNKNOWN
     Route: 064
     Dates: start: 20050519, end: 20050704
  4. CALCIUM GLUCONATE [Concomitant]
     Dosage: DOSE: UNKNOWN
     Route: 064
     Dates: start: 20050705
  5. POTASSIUM [Concomitant]
     Dosage: DOSE: UNKNOWN
     Route: 064
     Dates: end: 20050805
  6. POTASSIUM [Concomitant]
     Dosage: DOSE: UNKNOWN
     Route: 064
     Dates: start: 20051124
  7. PREDNISONE TAB [Concomitant]
     Dosage: DOSE: UNKNOWN
     Route: 064
     Dates: start: 20050401
  8. ENBREL [Concomitant]
     Dosage: DOSE: UNKNOWN
     Route: 064
     Dates: start: 20050429, end: 20050515
  9. ENBREL [Concomitant]
     Dosage: DOSE: UNKNOWN
     Route: 064
     Dates: start: 20050618
  10. FLEXERIL [Concomitant]
     Dosage: DOSE: UNKNOWN
     Route: 064
     Dates: start: 20050423
  11. SOMA [Concomitant]
     Dosage: DOSE: UNKNOWN
     Route: 064
     Dates: start: 20050430
  12. DARVOCET-N 100 [Concomitant]
     Dosage: DOSE: UNKNOWN
     Route: 064
     Dates: start: 20050409, end: 20050419
  13. DARVOCET-N 100 [Concomitant]
     Dosage: DOSE: UNKNOWN
     Route: 064
     Dates: start: 20050729, end: 20050805
  14. ZYRTEC [Concomitant]
     Dosage: DOSE: UNKNOWN
     Route: 064
     Dates: start: 20050426, end: 20050501
  15. ZYRTEC [Concomitant]
     Dosage: DOSE: UNKNOWN
     Route: 064
     Dates: start: 20050601, end: 20050715
  16. SINGULAIR [Concomitant]
     Dosage: DOSE: UNKNOWN
     Route: 064
     Dates: end: 20050505
  17. ALBUTEROL [Concomitant]
     Dosage: DOSE: UNKNOWN
     Route: 064
     Dates: end: 20050517
  18. PULMICORT [Concomitant]
     Dosage: DOSE: UNKNOWN
     Route: 064
     Dates: start: 20050510, end: 20050524
  19. PULMICORT [Concomitant]
     Dosage: DOSE: UNKNOWN
     Route: 064
     Dates: start: 20050704
  20. PULMICORT [Concomitant]
     Dosage: DOSE: UNKNOWN
     Route: 064
     Dates: start: 20051202, end: 20051208
  21. HYDROCHLOROTHIAZIDE [Concomitant]
     Dosage: DOSE: UNKNOWN
     Route: 064
     Dates: end: 20050505
  22. LEVAQUIN [Concomitant]
     Dosage: DOSE: UNKNOWN
     Route: 064
     Dates: start: 20050427, end: 20050430
  23. ACIPHEX [Concomitant]
     Dosage: DOSE: UNKNOWN
     Route: 064
     Dates: end: 20050505
  24. ACIPHEX [Concomitant]
     Dosage: DOSE: UNKNOWN
     Route: 064
     Dates: start: 20051124
  25. NYSTATIN [Concomitant]
     Dosage: DOSE: UNKNOWN
     Route: 064
     Dates: end: 20050505
  26. ZYBAN [Concomitant]
     Dosage: DOSE: UNKNOWN
     Route: 064
     Dates: start: 20050401, end: 20050410
  27. CELESTONE TAB [Concomitant]
     Dosage: DOSE: UNKNOWN
     Route: 064
     Dates: start: 20050608
  28. CELESTONE TAB [Concomitant]
     Dosage: DOSE: UNKNOWN
     Route: 064
     Dates: start: 20051121
  29. KEFLEX [Concomitant]
     Dosage: DOSE: UNKNOWN
     Route: 064
     Dates: start: 20050729, end: 20050807
  30. ALEVE [Concomitant]
     Dosage: DOSE: UNKNOWN
     Route: 064
     Dates: start: 20050201, end: 20050505
  31. MOTRIN [Concomitant]
     Dosage: DOSE: UNKNOWN
     Route: 064
     Dates: start: 20050409, end: 20050419
  32. MOTRIN [Concomitant]
     Dosage: DOSE: UNKNOWN
     Route: 064
     Dates: start: 20050516, end: 20050707
  33. BENADRYL [Concomitant]
     Dosage: DOSE: UNKNOWN
     Route: 064
     Dates: start: 20050415, end: 20050426
  34. BENADRYL [Concomitant]
     Dosage: DOSE: UNKNOWN
     Route: 064
     Dates: start: 20051201, end: 20051208
  35. TYLENOL SINUS [Concomitant]
     Dosage: DOSE: UNKNOWN
     Route: 064
     Dates: start: 20050418, end: 20050426
  36. TUMS [Concomitant]
     Dosage: DOSE: UNKNOWN
     Route: 064
     Dates: start: 20050715, end: 20050901
  37. CHOLESTYRAMINE [Concomitant]
     Dosage: DOSE: UNKNOWN
     Route: 064
     Dates: start: 20050501
  38. CHOLESTYRAMINE [Concomitant]
     Dosage: DOSE: UNKOWN
     Route: 064
     Dates: start: 20050506, end: 20050516
  39. MEPERIDINE [Concomitant]
     Dosage: DOSE: UNKNOWN
     Route: 064
     Dates: start: 20051117
  40. MONISTAT [Concomitant]
     Dosage: DOSE: UNKNOWN
     Route: 064
     Dates: start: 20050501, end: 20050503
  41. PEPCID [Concomitant]
     Dosage: DOSE: UNKNOWN
     Route: 064
     Dates: start: 20050509
  42. TYLENOL [Concomitant]
     Dosage: DOSE: UNKNOWN
     Route: 064
     Dates: start: 20050707, end: 20050930
  43. TYLENOL [Concomitant]
     Dosage: DOSE: UNKNOWN
     Route: 064
     Dates: start: 20051203
  44. MAALOX FAST BLOCKER [Concomitant]
     Dosage: DOSE: UNKNOWN
     Route: 064
     Dates: start: 20051001

REACTIONS (3)
  - CONGENITAL CYSTIC KIDNEY DISEASE [None]
  - DRUG EXPOSURE DURING PREGNANCY [None]
  - SINGLE FUNCTIONAL KIDNEY [None]
